FAERS Safety Report 9416536 (Version 1)
Quarter: 2013Q3

REPORT INFORMATION
  Report Type: Report from Study
  Country: CA (occurrence: CA)
  Receive Date: 20130724
  Receipt Date: 20130724
  Transmission Date: 20140515
  Serious: Yes (Other)
  Sender: FDA-Public Use
  Company Number: CA-JNJFOC-20130711709

PATIENT
  Age: 28 Year
  Sex: Female
  Weight: 71.8 kg

DRUGS (5)
  1. REMICADE [Suspect]
     Indication: CROHN^S DISEASE
     Route: 042
     Dates: start: 20110330
  2. REACTINE [Concomitant]
     Route: 065
  3. FAMOTIDINE [Concomitant]
     Route: 048
  4. VITAMIN B12 [Concomitant]
     Route: 065
  5. IMMODIUM [Concomitant]
     Route: 065

REACTIONS (1)
  - Haematemesis [Recovered/Resolved]
